FAERS Safety Report 16789848 (Version 4)
Quarter: 2021Q3

REPORT INFORMATION
  Report Type: Report from Study
  Country: None (occurrence: FR)
  Receive Date: 20190910
  Receipt Date: 20210917
  Transmission Date: 20211014
  Serious: Yes (Other)
  Sender: FDA-Public Use
  Company Number: FR-ABBVIE-19K-056-2916857-00

PATIENT
  Sex: Male
  Weight: 75 kg

DRUGS (6)
  1. VENCLYXTO [Suspect]
     Active Substance: VENETOCLAX
     Indication: CHRONIC LYMPHOCYTIC LEUKAEMIA
     Route: 048
     Dates: start: 20190803, end: 20190809
  2. RASBURICASE [Concomitant]
     Active Substance: RASBURICASE
     Indication: PROPHYLAXIS
     Dates: start: 20190802, end: 20190802
  3. RASBURICASE [Concomitant]
     Active Substance: RASBURICASE
     Dates: start: 20190811, end: 20190811
  4. VENCLYXTO [Suspect]
     Active Substance: VENETOCLAX
     Route: 048
     Dates: start: 20190810, end: 20190816
  5. RASBURICASE [Concomitant]
     Active Substance: RASBURICASE
     Dates: start: 20190809, end: 20190809
  6. VENCLYXTO [Suspect]
     Active Substance: VENETOCLAX
     Route: 048
     Dates: start: 20190817, end: 20190830

REACTIONS (3)
  - Hyperthermia [Recovered/Resolved]
  - Ureaplasma infection [Recovered/Resolved]
  - Pancytopenia [Recovered/Resolved]

NARRATIVE: CASE EVENT DATE: 20190828
